FAERS Safety Report 21754860 (Version 1)
Quarter: 2022Q4

REPORT INFORMATION
  Report Type: Spontaneous
  Country: AU (occurrence: AU)
  Receive Date: 20221220
  Receipt Date: 20221220
  Transmission Date: 20230112
  Serious: Yes (Other)
  Sender: FDA-Public Use
  Company Number: AU-CIPLA (EU) LIMITED-2022AU07230

PATIENT
  Age: 52 Year
  Sex: Female

DRUGS (2)
  1. ERLOTINIB [Suspect]
     Active Substance: ERLOTINIB
     Indication: Product used for unknown indication
     Dosage: UNK
     Route: 065
     Dates: start: 2017
  2. GEFITINIB [Suspect]
     Active Substance: GEFITINIB
     Indication: Non-small cell lung cancer metastatic
     Dosage: UNK
     Route: 048
     Dates: start: 2017

REACTIONS (2)
  - Malignant neoplasm progression [Unknown]
  - Metastases to meninges [Unknown]
